FAERS Safety Report 9093564 (Version 2)
Quarter: 2013Q1

REPORT INFORMATION
  Report Type: Spontaneous
  Country: IT (occurrence: IT)
  Receive Date: 20130218
  Receipt Date: 20130322
  Transmission Date: 20140127
  Serious: Yes (Hospitalization)
  Sender: FDA-Public Use
  Company Number: IT-ELI_LILLY_AND_COMPANY-IT201302002531

PATIENT
  Age: 85 Year
  Sex: Female
  Weight: 72 kg

DRUGS (8)
  1. HUMULIN REGULAR [Suspect]
     Indication: TYPE 2 DIABETES MELLITUS
     Dosage: 34 IU, QD
     Route: 058
     Dates: start: 20091101, end: 20121114
  2. HUMULIN REGULAR [Suspect]
     Dosage: UNK, PRN
     Dates: start: 20121115
  3. ALLOPURINOL [Concomitant]
     Dosage: 300 MG, UNK
     Route: 048
  4. AMLODIPINE BESYLATE [Concomitant]
     Dosage: 5 MG, UNK
     Route: 048
  5. OMEPRAZOLE [Concomitant]
     Dosage: 20 MG, UNK
     Route: 048
  6. FUROSEMIDE [Concomitant]
     Dosage: 25 MG, UNK
     Route: 048
  7. TAVOR [Concomitant]
     Dosage: 1 MG, UNK
     Route: 048
  8. CARDIOASPIRIN [Concomitant]
     Dosage: 100 MG, UNK
     Route: 048

REACTIONS (2)
  - Hypoglycaemia [Recovered/Resolved]
  - Confusional state [Recovered/Resolved]
